FAERS Safety Report 6047822-1 (Version None)
Quarter: 2009Q1

REPORT INFORMATION
  Report Type: 
  Country: None (occurrence: None)
  Receive Date: 20090123
  Receipt Date: 20090112
  Transmission Date: 20090719
  Serious: Yes (Other)
  Sender: FDA-Public Use
  Company Number: AR-PFIZER INC-2008087646

PATIENT

DRUGS (1)
  1. SUTENT [Suspect]
     Indication: RENAL CANCER METASTATIC
     Route: 048

REACTIONS (11)
  - ALOPECIA [None]
  - ANAEMIA [None]
  - ASCITES [None]
  - CARDIAC DISORDER [None]
  - FATIGUE [None]
  - GAIT DISTURBANCE [None]
  - LEUKOPENIA [None]
  - PALMAR-PLANTAR ERYTHRODYSAESTHESIA SYNDROME [None]
  - PLEURAL EFFUSION [None]
  - STOMATITIS [None]
  - THROMBOCYTOPENIA [None]
